FAERS Safety Report 22630633 (Version 1)
Quarter: 2023Q2

REPORT INFORMATION
  Report Type: Report from Study
  Country: DE (occurrence: DE)
  Receive Date: 20230622
  Receipt Date: 20230622
  Transmission Date: 20230721
  Serious: Yes (Death, Hospitalization)
  Sender: FDA-Public Use
  Company Number: DE-BoehringerIngelheim-2023-BI-244753

PATIENT
  Age: 38 Year
  Sex: Male
  Weight: 70 kg

DRUGS (22)
  1. NINTEDANIB [Suspect]
     Active Substance: NINTEDANIB
     Indication: Non-small cell lung cancer
     Dates: start: 20230323, end: 20230607
  2. DOCETAXEL [Suspect]
     Active Substance: DOCETAXEL
     Indication: Non-small cell lung cancer
     Route: 042
     Dates: start: 20230322, end: 20230524
  3. Ondensarton [Concomitant]
     Indication: Product used for unknown indication
     Dosage: PER CYCLE
     Route: 048
     Dates: start: 20221104, end: 20230111
  4. Ondensarton [Concomitant]
     Dosage: PER CYCLE
     Route: 048
  5. DEXAMETHASONE [Concomitant]
     Active Substance: DEXAMETHASONE
     Indication: Product used for unknown indication
     Dosage: PER CYCLE
     Route: 048
     Dates: start: 20221104, end: 20230111
  6. DEXAMETHASONE [Concomitant]
     Active Substance: DEXAMETHASONE
     Dosage: PER CYCLE
     Route: 048
  7. DEXAMETHASONE [Concomitant]
     Active Substance: DEXAMETHASONE
     Dosage: PER CYCLE
     Route: 042
     Dates: start: 20230321, end: 20230524
  8. PACLITAXEL [Concomitant]
     Active Substance: PACLITAXEL
     Indication: Product used for unknown indication
     Dosage: PER CYCLE
     Route: 042
     Dates: start: 20221104, end: 20230111
  9. PACLITAXEL [Concomitant]
     Active Substance: PACLITAXEL
     Dosage: PER CYCLE
     Route: 048
  10. CARBOPLATIN [Concomitant]
     Active Substance: CARBOPLATIN
     Indication: Product used for unknown indication
     Dosage: PER CYCLE
     Route: 042
     Dates: start: 20221104, end: 20230111
  11. CARBOPLATIN [Concomitant]
     Active Substance: CARBOPLATIN
     Dosage: PER CYCLE
     Route: 048
  12. CIMETIDINE [Concomitant]
     Active Substance: CIMETIDINE
     Indication: Product used for unknown indication
     Dosage: PER CYCLE
     Route: 042
     Dates: start: 20221104, end: 20230111
  13. CIMETIDINE [Concomitant]
     Active Substance: CIMETIDINE
     Dosage: PER CYCLE
     Route: 048
  14. CIMETIDINE [Concomitant]
     Active Substance: CIMETIDINE
     Dosage: PER CYCLE
     Route: 042
     Dates: start: 20230321, end: 20230524
  15. CLEMASTINE [Concomitant]
     Active Substance: CLEMASTINE
     Indication: Product used for unknown indication
     Dosage: PER CYCLE
     Route: 042
     Dates: start: 20221104, end: 20230111
  16. CLEMASTINE [Concomitant]
     Active Substance: CLEMASTINE
     Dosage: PER CYCLE
     Route: 048
  17. CLEMASTINE [Concomitant]
     Active Substance: CLEMASTINE
     Dosage: PER CYCLE
     Route: 042
     Dates: start: 20230321, end: 20230524
  18. Jonosteril [Concomitant]
     Indication: Product used for unknown indication
     Dosage: PER CYCLE
     Route: 042
     Dates: start: 20221104, end: 20230111
  19. Jonosteril [Concomitant]
     Dosage: PER CYCLE
     Route: 048
  20. NACL0,9% [Concomitant]
     Indication: Product used for unknown indication
     Dosage: PER CYCLE
     Route: 042
     Dates: start: 20221104, end: 20230111
  21. NACL0,9% [Concomitant]
     Dosage: PER CYCLE
     Route: 048
  22. NACL0,9% [Concomitant]
     Dosage: PER CYCLE
     Route: 042
     Dates: start: 20230321, end: 20230524

REACTIONS (4)
  - General physical health deterioration [Fatal]
  - Fall [Fatal]
  - Mucosal inflammation [Fatal]
  - Malignant neoplasm progression [Fatal]

NARRATIVE: CASE EVENT DATE: 20230606
